FAERS Safety Report 7001592-9 (Version None)
Quarter: 2010Q3

REPORT INFORMATION
  Report Type: 
  Country: None (occurrence: None)
  Receive Date: 20100920
  Receipt Date: 20100907
  Transmission Date: 20110219
  Serious: Yes (Life-Threatening, Hospitalization, Disabling, Other)
  Sender: FDA-Public Use
  Company Number: CZ-SANOFI-AVENTIS-D01200900935

PATIENT
  Age: 60 Year
  Sex: Female
  Weight: 71 kg

DRUGS (30)
  1. ENOXAPARIN SODIUM [Suspect]
     Dosage: DOSE TEXT: 10 MG OR 20 MG
     Route: 058
     Dates: start: 20090128, end: 20090206
  2. AMYLASE/BRINASE/LIPASE/PANCREATIN [Concomitant]
     Route: 065
     Dates: start: 20080901, end: 20090128
  3. ALPRAZOLAM [Concomitant]
     Route: 065
     Dates: start: 20080901, end: 20090128
  4. METOPROLOL TARTRATE [Concomitant]
     Route: 065
     Dates: start: 20080101, end: 20090129
  5. METOPROLOL TARTRATE [Concomitant]
     Route: 065
     Dates: start: 20090131, end: 20090131
  6. METOPROLOL TARTRATE [Concomitant]
     Route: 065
     Dates: start: 20090202, end: 20090207
  7. RANITIDINE HYDROCHLORIDE [Concomitant]
     Route: 065
     Dates: start: 19990101, end: 20090129
  8. ZOLPIDEM TARTRATE [Concomitant]
     Route: 065
     Dates: start: 20090128, end: 20090128
  9. INSULIN HUMAN [Concomitant]
     Route: 065
     Dates: start: 20090128
  10. MIDAZOLAM HCL [Concomitant]
     Route: 065
     Dates: start: 20090129, end: 20090129
  11. PLASMA-LYTE 56 AND DEXTROSE 5% IN PLASTIC CONTAINER [Concomitant]
     Route: 065
     Dates: start: 20090129, end: 20090129
  12. CEFOPERAZONE SODIUM [Concomitant]
     Route: 065
     Dates: start: 20090129, end: 20090129
  13. ATROPINE SULFATE [Concomitant]
     Route: 065
     Dates: start: 20090129, end: 20090129
  14. NEOSTIGMINE [Concomitant]
     Route: 065
     Dates: start: 20090129, end: 20090129
  15. PARACETAMOL [Concomitant]
     Route: 065
     Dates: start: 20090129, end: 20090129
  16. BUPIVACAINE HYDROCHLORIDE [Concomitant]
     Route: 065
     Dates: start: 20090129, end: 20090204
  17. FAMOTIDINE [Concomitant]
     Route: 065
     Dates: start: 20090129, end: 20090201
  18. SUFENTANIL CITRATE [Concomitant]
     Route: 065
     Dates: start: 20090129, end: 20090129
  19. PIRITRAMIDE [Concomitant]
     Route: 065
     Dates: start: 20090129, end: 20090208
  20. METAMIZOLE SODIUM [Concomitant]
     Route: 065
     Dates: start: 20090129, end: 20090209
  21. FENTANYL CITRATE [Concomitant]
     Route: 065
     Dates: start: 20090129, end: 20090204
  22. AMBROXOL HYDROCHLORIDE [Concomitant]
     Route: 065
     Dates: start: 20090129, end: 20090209
  23. HAES-RHEOPOND [Concomitant]
     Route: 065
     Dates: start: 20090130, end: 20090131
  24. HAES-RHEOPOND [Concomitant]
     Route: 065
     Dates: start: 20090202, end: 20090202
  25. FUROSEMIDE [Concomitant]
     Route: 065
     Dates: start: 20090130, end: 20090210
  26. OMEPRAZOLE [Concomitant]
     Route: 065
     Dates: start: 20090202, end: 20090209
  27. TIAPRIDE HYDROCHLORIDE [Concomitant]
     Route: 065
     Dates: start: 20090203, end: 20090203
  28. THIETHYLPERAZINE [Concomitant]
     Route: 065
     Dates: start: 20090129, end: 20090129
  29. THIETHYLPERAZINE [Concomitant]
     Route: 065
     Dates: start: 20090131, end: 20090131
  30. TRAMADOL [Concomitant]
     Route: 065

REACTIONS (5)
  - ABDOMINAL ABSCESS [None]
  - ANEURYSM RUPTURED [None]
  - BRONCHIAL HAEMORRHAGE [None]
  - SEPSIS [None]
  - SPLENIC HAEMORRHAGE [None]
